FAERS Safety Report 10234078 (Version 1)
Quarter: 2014Q2

REPORT INFORMATION
  Report Type: Spontaneous
  Country: US (occurrence: US)
  Receive Date: 20140612
  Receipt Date: 20140612
  Transmission Date: 20141212
  Serious: No
  Sender: FDA-Public Use
  Company Number: US-B.I. PHARMACEUTICALS,INC./RIDGEFIELD-2014-BI-25040BP

PATIENT
  Sex: Female

DRUGS (5)
  1. MOBIC [Suspect]
     Indication: PRODUCT USED FOR UNKNOWN INDICATION
     Route: 065
  2. TRAZODONE [Concomitant]
     Route: 065
  3. WELLBUTRIN [Concomitant]
     Route: 065
  4. LINZESS [Concomitant]
     Route: 065
  5. LYRICA [Concomitant]
     Indication: FIBROMYALGIA
     Dosage: 300 MG
     Route: 048

REACTIONS (1)
  - Drug hypersensitivity [Unknown]
